FAERS Safety Report 7266180-8 (Version None)
Quarter: 2011Q1

REPORT INFORMATION
  Report Type: 
  Country: None (occurrence: None)
  Receive Date: 20110131
  Receipt Date: 20101122
  Transmission Date: 20110831
  Serious: No
  Sender: FDA-Public Use
  Company Number: US-ABBOTT-10P-163-0664175-00

PATIENT
  Sex: Female

DRUGS (3)
  1. MELATONIN [Concomitant]
     Indication: PRODUCT USED FOR UNKNOWN INDICATION
  2. LUPRON DEPOT [Suspect]
     Indication: PRODUCT USED FOR UNKNOWN INDICATION
  3. OTHER MEDICATIONS [Concomitant]
     Indication: PRODUCT USED FOR UNKNOWN INDICATION
     Dosage: 7 VIALS TOTAL

REACTIONS (13)
  - HEADACHE [None]
  - CONJUNCTIVITIS INFECTIVE [None]
  - ABDOMINAL PAIN UPPER [None]
  - ABDOMINAL DISTENSION [None]
  - EMOTIONAL DISTRESS [None]
  - AFFECT LABILITY [None]
  - ALOPECIA [None]
  - HOT FLUSH [None]
  - CRYING [None]
  - GASTRIC DISORDER [None]
  - INSOMNIA [None]
  - UNEVALUABLE EVENT [None]
  - MUSCLE SPASMS [None]
